FAERS Safety Report 12135862 (Version 2)
Quarter: 2018Q2

REPORT INFORMATION
  Report Type: Report from Study
  Country: US (occurrence: US)
  Receive Date: 20160302
  Receipt Date: 20180508
  Transmission Date: 20180711
  Serious: Yes (Other)
  Sender: FDA-Public Use
  Company Number: US-ROCHE-1719254

PATIENT
  Sex: Female

DRUGS (8)
  1. ABT-751 [Suspect]
     Active Substance: INVESTIGATIONAL PRODUCT
     Indication: COLORECTAL CANCER
     Dosage: AT DOSE LEVEL 1, 1B, 2, 2B (DAYS 1-14)
     Route: 048
  2. ABT-751 [Suspect]
     Active Substance: INVESTIGATIONAL PRODUCT
     Dosage: AT DOSE LEVEL 3 (DAYS 1-14).
     Route: 048
  3. IRINOTECAN [Suspect]
     Active Substance: IRINOTECAN
     Indication: COLORECTAL CANCER
     Dosage: IN DOSE 1, 1B LEVEL ON DAY 1
     Route: 042
  4. ABT-751 [Suspect]
     Active Substance: INVESTIGATIONAL PRODUCT
     Dosage: FROM DAY -14 TO DAY -8
     Route: 048
  5. CAPECITABINE. [Suspect]
     Active Substance: CAPECITABINE
     Dosage: ORAL DIVIDED INTO TWICE-DAILY DOSING DAYS 1-14.
     Route: 048
  6. CAPECITABINE. [Suspect]
     Active Substance: CAPECITABINE
     Indication: COLORECTAL CANCER
     Dosage: ORAL DIVIDED INTO TWICE-DAILY DOSING DAYS 1-14.
     Route: 048
  7. IRINOTECAN [Suspect]
     Active Substance: IRINOTECAN
     Dosage: IN DOSE LEVEL 2, 2B AND 3 ON DAY 1
     Route: 042
  8. BEVACIZUMAB. [Suspect]
     Active Substance: BEVACIZUMAB
     Indication: COLORECTAL CANCER
     Dosage: T DOSE LEVEL 1B, 2B AND 3 OVER 90 MINUTES ON DAY 1
     Route: 042

REACTIONS (2)
  - Alanine aminotransferase increased [Recovered/Resolved]
  - Hypokalaemia [Unknown]
